FAERS Safety Report 9713361 (Version 1)
Quarter: 2013Q4

REPORT INFORMATION
  Report Type: Spontaneous
  Country: PL (occurrence: PL)
  Receive Date: 20131126
  Receipt Date: 20131126
  Transmission Date: 20140711
  Serious: Yes (Hospitalization, Other)
  Sender: FDA-Public Use
  Company Number: PL-PFIZER INC-2013336592

PATIENT
  Age: 30 Year
  Sex: Male

DRUGS (3)
  1. OLANZAPINE [Suspect]
     Dosage: UNK
  2. ALPRAZOLAM [Suspect]
     Dosage: UNK
  3. CLENBUTEROL [Suspect]
     Dosage: UNK

REACTIONS (10)
  - Overdose [Unknown]
  - Suicide attempt [Unknown]
  - Hypokalaemia [Recovered/Resolved]
  - Tachycardia [Recovered/Resolved]
  - Blood pressure decreased [Unknown]
  - Hypothermia [Unknown]
  - Respiratory disorder [Unknown]
  - Tremor [Unknown]
  - Somnolence [Unknown]
  - Drug screen positive [Unknown]
